FAERS Safety Report 5720937-0 (Version None)
Quarter: 2008Q2

REPORT INFORMATION
  Report Type: 
  Country: None (occurrence: None)
  Receive Date: 20080423
  Receipt Date: 20071231
  Transmission Date: 20081010
  Serious: Yes (Hospitalization, Disabling)
  Sender: FDA-Public Use
  Company Number: 253823

PATIENT
  Age: 66 Year
  Sex: Female

DRUGS (2)
  1. AVASTIN [Suspect]
     Indication: BREAST CANCER METASTATIC
     Dosage: 10 MG/KG, Q3W
     Dates: start: 20070905
  2. TAXOTERE [Concomitant]

REACTIONS (1)
  - ABDOMINAL ABSCESS [None]
